FAERS Safety Report 16542252 (Version 1)
Quarter: 2019Q3

REPORT INFORMATION
  Report Type: Spontaneous
  Country: DE (occurrence: DE)
  Receive Date: 20190708
  Receipt Date: 20190708
  Transmission Date: 20191004
  Serious: Yes (Other)
  Sender: FDA-Public Use
  Company Number: PHHY2019DE156136

PATIENT
  Age: 65 Year
  Sex: Male

DRUGS (1)
  1. TAMSULOSINHYDROCHLORID HEXAL [Suspect]
     Active Substance: TAMSULOSIN HYDROCHLORIDE
     Indication: PRODUCT USED FOR UNKNOWN INDICATION
     Dosage: 0.4 MG, QD
     Route: 065
     Dates: start: 201906

REACTIONS (3)
  - Drug intolerance [Unknown]
  - Micturition urgency [Unknown]
  - Urine abnormality [Unknown]

NARRATIVE: CASE EVENT DATE: 201906
